FAERS Safety Report 7604451-3 (Version None)
Quarter: 2011Q3

REPORT INFORMATION
  Report Type: 
  Country: None (occurrence: None)
  Receive Date: 20110712
  Receipt Date: 20110704
  Transmission Date: 20111222
  Serious: Yes (Hospitalization, Congenital Anomaly, Other)
  Sender: FDA-Public Use
  Company Number: GXKR2011DE02177

PATIENT
  Sex: Male
  Weight: 2.135 kg

DRUGS (3)
  1. CLOMIPRAMINE HYDROCHLORIDE [Suspect]
     Indication: BIPOLAR DISORDER
     Dosage: MATERNAL DOSE: 2X75 MG DAILY
     Route: 064
  2. FOLIC ACID [Concomitant]
     Indication: PROPHYLAXIS OF NEURAL TUBE DEFECT
     Dosage: MATERNAL DOSE: 0.8 MG DAILY
     Route: 064
  3. BETAMETHASONE [Concomitant]
     Indication: MATERNAL THERAPY TO ENHANCE FOETAL LUNG MATURITY
     Dosage: UNK UKN, UNK
     Route: 064

REACTIONS (7)
  - PATENT DUCTUS ARTERIOSUS [None]
  - XANTHOGRANULOMA [None]
  - NEONATAL RESPIRATORY DISTRESS SYNDROME [None]
  - MATERNAL EXPOSURE DURING PREGNANCY [None]
  - OPISTHOTONUS [None]
  - PREMATURE BABY [None]
  - MYOCLONUS [None]
